FAERS Safety Report 17450007 (Version 1)
Quarter: 2020Q1

REPORT INFORMATION
  Report Type: Spontaneous
  Country: US (occurrence: US)
  Receive Date: 20200207
  Receipt Date: 20200207
  Transmission Date: 20200409
  Serious: Yes (Death)
  Sender: FDA-Public Use
  Company Number: None

PATIENT
  Age: 67 Year
  Sex: Female

DRUGS (10)
  1. ALENDRONATE [Concomitant]
     Active Substance: ALENDRONATE SODIUM
  2. SIMVASTATIN. [Concomitant]
     Active Substance: SIMVASTATIN
  3. BUMETANIDE. [Concomitant]
     Active Substance: BUMETANIDE
  4. FOLIC ACID. [Concomitant]
     Active Substance: FOLIC ACID
  5. POT CHLORIDE [Concomitant]
     Active Substance: POTASSIUM CHLORIDE
  6. LEVOTHYROXIN [Concomitant]
     Active Substance: LEVOTHYROXINE
  7. OMEPRAZOLE. [Concomitant]
     Active Substance: OMEPRAZOLE
  8. VITAMIN D3 [Concomitant]
     Active Substance: CHOLECALCIFEROL
  9. TADALAFIL 20MG [Suspect]
     Active Substance: TADALAFIL
     Indication: PULMONARY ARTERIAL HYPERTENSION
     Route: 048
     Dates: start: 20181026
  10. SPIRONOLACT [Concomitant]
     Active Substance: SPIRONOLACTONE

REACTIONS (1)
  - Death [None]
